FAERS Safety Report 21665281 (Version 3)
Quarter: 2022Q4

REPORT INFORMATION
  Report Type: Spontaneous
  Country: RU (occurrence: RU)
  Receive Date: 20221201
  Receipt Date: 20221210
  Transmission Date: 20230113
  Serious: Yes (Death)
  Sender: FDA-Public Use
  Company Number: RU-ABBVIE-4218961

PATIENT
  Age: 60 Year
  Sex: Male

DRUGS (2)
  1. VENETOCLAX [Suspect]
     Active Substance: VENETOCLAX
     Indication: Acute myeloid leukaemia refractory
     Route: 048
  2. RITUXIMAB [Concomitant]
     Active Substance: RITUXIMAB
     Indication: Acute myeloid leukaemia refractory
     Dosage: NOT REPORTED

REACTIONS (1)
  - Acute myeloid leukaemia [Fatal]
